FAERS Safety Report 4352242-1 (Version None)
Quarter: 2004Q2

REPORT INFORMATION
  Report Type: 
  Country: None (occurrence: None)
  Receive Date: 20040428
  Receipt Date: 20040422
  Transmission Date: 20050107
  Serious: Yes (Other)
  Sender: FDA-Public Use
  Company Number: JP-JNJFOC-20040402547

PATIENT
  Age: 56 Year
  Sex: Male

DRUGS (2)
  1. LEVOFLOXACIN [Suspect]
     Indication: BRONCHITIS ACUTE
     Dosage: ORAL
     Route: 048
     Dates: start: 20040301, end: 20040301
  2. CORTISON (CORTISONE) [Concomitant]

REACTIONS (3)
  - MYOSITIS [None]
  - RHABDOMYOLYSIS [None]
  - TENDONITIS [None]
